FAERS Safety Report 10048275 (Version 1)
Quarter: 2014Q1

REPORT INFORMATION
  Report Type: Other
  Country: US (occurrence: US)
  Receive Date: 20140331
  Receipt Date: 20140331
  Transmission Date: 20141002
  Serious: Yes (Death, Hospitalization)
  Sender: FDA-Public Use
  Company Number: US-ACTELION-A-CH2014-96633

PATIENT
  Age: 2 Month
  Sex: Female

DRUGS (3)
  1. TRACLEER [Suspect]
     Indication: PULMONARY VASCULAR DISORDER
     Route: 048
  2. SILDENAFIL [Concomitant]
     Indication: BRONCHOPULMONARY DYSPLASIA
  3. NITRIC OXIDE [Concomitant]
     Indication: BRONCHOPULMONARY DYSPLASIA

REACTIONS (1)
  - Pulmonary vascular disorder [Fatal]
